FAERS Safety Report 4703972-0 (Version None)
Quarter: 2005Q2

REPORT INFORMATION
  Report Type: 
  Country: None (occurrence: None)
  Receive Date: 20050629
  Receipt Date: 20050616
  Transmission Date: 20051028
  Serious: Yes (Hospitalization)
  Sender: FDA-Public Use
  Company Number: 11651

PATIENT
  Age: 68 Year
  Sex: Female

DRUGS (5)
  1. CARBOPLATIN [Suspect]
     Indication: OVARIAN CANCER
     Dosage: 450 MG FREQ UNK; IV
     Route: 042
     Dates: start: 20050520, end: 20050520
  2. PACLITAXEL [Concomitant]
  3. ONDASETRON [Concomitant]
  4. DEXAMETHASONE [Concomitant]
  5. RANITIDINE [Concomitant]

REACTIONS (3)
  - CYANOSIS [None]
  - HYPOXIA [None]
  - TACHYPNOEA [None]
